FAERS Safety Report 18629543 (Version 1)
Quarter: 2020Q4

REPORT INFORMATION
  Report Type: Report from Study
  Country: DE (occurrence: DE)
  Receive Date: 20201217
  Receipt Date: 20201217
  Transmission Date: 20210114
  Serious: Yes (Other)
  Sender: FDA-Public Use
  Company Number: DE-MYLANLABS-2020M1101568

PATIENT
  Age: 74 Year
  Sex: Male
  Weight: 97 kg

DRUGS (15)
  1. CORTISONE [Suspect]
     Active Substance: CORTISONE
     Dosage: TAPERING
     Route: 065
  2. TORASEMIDE [Concomitant]
     Active Substance: TORSEMIDE
     Dosage: UNK
  3. ALLOPURINOL. [Concomitant]
     Active Substance: ALLOPURINOL
     Dosage: 20 MILLIGRAM
  4. CORTISONE [Suspect]
     Active Substance: CORTISONE
     Dosage: 2 MILLIGRAM
     Route: 065
  5. VIGANTOL                           /00318501/ [Concomitant]
     Active Substance: CHOLECALCIFEROL
     Dosage: UNK
  6. ROACTEMRA [Suspect]
     Active Substance: TOCILIZUMAB
     Dosage: UNK, Q2W
     Route: 058
     Dates: start: 202008, end: 20201015
  7. OMEPRAZOLE. [Concomitant]
     Active Substance: OMEPRAZOLE
     Dosage: UNK
  8. TONSIPRET [Concomitant]
     Active Substance: HERBALS
     Dosage: UNK
  9. ROACTEMRA [Suspect]
     Active Substance: TOCILIZUMAB
     Dosage: 162 MILLIGRAM, Q2W
     Route: 058
     Dates: start: 202007
  10. CLOPIDOGREL [Concomitant]
     Active Substance: CLOPIDOGREL BISULFATE
     Dosage: UNK
  11. BISOPROLOL [Concomitant]
     Active Substance: BISOPROLOL
     Dosage: 10 MILLIGRAM
  12. METHOTREXATE. [Suspect]
     Active Substance: METHOTREXATE
     Indication: PRODUCT USED FOR UNKNOWN INDICATION
     Dosage: UNK
     Route: 065
  13. ROACTEMRA [Suspect]
     Active Substance: TOCILIZUMAB
     Indication: GIANT CELL ARTERITIS
     Dosage: 162 MILLIGRAM, Q2W
     Route: 058
     Dates: start: 20190314
  14. CORTISONE [Suspect]
     Active Substance: CORTISONE
     Indication: PRODUCT USED FOR UNKNOWN INDICATION
     Dosage: TAPERING
     Route: 065
  15. PANTOPRAZOLE [Concomitant]
     Active Substance: PANTOPRAZOLE
     Dosage: UNK

REACTIONS (11)
  - Cataract [Recovered/Resolved]
  - Arthralgia [Not Recovered/Not Resolved]
  - Platelet count decreased [Recovering/Resolving]
  - Vocal cord disorder [Recovered/Resolved]
  - White blood cell count decreased [Recovering/Resolving]
  - Heart rate irregular [Not Recovered/Not Resolved]
  - Hyperhidrosis [Not Recovered/Not Resolved]
  - Increased upper airway secretion [Recovered/Resolved]
  - Weight increased [Recovered/Resolved]
  - Visual impairment [Not Recovered/Not Resolved]
  - Pain in extremity [Not Recovered/Not Resolved]

NARRATIVE: CASE EVENT DATE: 20190314
